FAERS Safety Report 14442251 (Version 2)
Quarter: 2018Q1

REPORT INFORMATION
  Report Type: Report from Study
  Country: US (occurrence: US)
  Receive Date: 20180125
  Receipt Date: 20180329
  Transmission Date: 20180509
  Serious: No
  Sender: FDA-Public Use
  Company Number: PHHY2018US008775

PATIENT
  Age: 64 Year
  Sex: Female

DRUGS (1)
  1. GILENYA [Suspect]
     Active Substance: FINGOLIMOD HYDROCHLORIDE
     Indication: MULTIPLE SCLEROSIS
     Dosage: UNK, QD
     Route: 048

REACTIONS (5)
  - Depression [Unknown]
  - Visual impairment [Recovered/Resolved]
  - Dizziness [Recovered/Resolved]
  - Dry eye [Unknown]
  - Muscle spasticity [Unknown]

NARRATIVE: CASE EVENT DATE: 20170825
